FAERS Safety Report 13292046 (Version 1)
Quarter: 2017Q1

REPORT INFORMATION
  Report Type: Spontaneous
  Country: US (occurrence: US)
  Receive Date: 20170302
  Receipt Date: 20170302
  Transmission Date: 20170428
  Serious: Yes (Hospitalization)
  Sender: FDA-Public Use
  Company Number: None

PATIENT
  Age: 78 Year
  Sex: Male
  Weight: 58.5 kg

DRUGS (2)
  1. HYDROCHLOROTHIAZIDE. [Suspect]
     Active Substance: HYDROCHLOROTHIAZIDE
     Indication: HYPERTENSION
     Dosage: MG EVERY DAY PO
     Route: 048
     Dates: start: 20170125, end: 20170128
  2. LISINOPRIL. [Suspect]
     Active Substance: LISINOPRIL
     Indication: HYPERTENSION
     Dosage: MG EVERY DAY PO
     Route: 048
     Dates: start: 20150802, end: 20170130

REACTIONS (7)
  - Hyperkalaemia [None]
  - Blood creatine increased [None]
  - Blood urea increased [None]
  - Hyperglycaemia [None]
  - Anaemia [None]
  - Ischaemia [None]
  - Acute kidney injury [None]

NARRATIVE: CASE EVENT DATE: 20170125
